FAERS Safety Report 9149744 (Version 1)
Quarter: 2013Q1

REPORT INFORMATION
  Report Type: Spontaneous
  Country: US (occurrence: None)
  Receive Date: 20130301
  Receipt Date: 20130301
  Transmission Date: 20140127
  Serious: Yes (Hospitalization)
  Sender: FDA-Public Use
  Company Number: None

PATIENT
  Age: 67 Year
  Sex: Male
  Weight: 70 kg

DRUGS (3)
  1. ETANERCEPT [Suspect]
     Indication: POLYCHONDRITIS
     Dosage: 50 MG  QWEEK  SQ
     Route: 058
     Dates: start: 20120319, end: 20120327
  2. ETANERCEPT [Suspect]
     Indication: AUTOIMMUNE DISORDER
     Dosage: 50 MG  QWEEK  SQ
     Route: 058
     Dates: start: 20120319, end: 20120327
  3. ETANERCEPT [Suspect]
     Indication: INFLAMMATION
     Dosage: 50 MG  QWEEK  SQ
     Route: 058
     Dates: start: 20120319, end: 20120327

REACTIONS (8)
  - Injection site erythema [None]
  - Headache [None]
  - Rash [None]
  - Rash [None]
  - Pyrexia [None]
  - Type IV hypersensitivity reaction [None]
  - Urticaria [None]
  - Pruritus [None]
